FAERS Safety Report 17409207 (Version 1)
Quarter: 2020Q1

REPORT INFORMATION
  Report Type: Spontaneous
  Country: GB (occurrence: GB)
  Receive Date: 20200212
  Receipt Date: 20200212
  Transmission Date: 20200409
  Serious: Yes (Life-Threatening, Other)
  Sender: FDA-Public Use
  Company Number: GB-MYLANLABS-2020M1015339

PATIENT
  Age: 65 Year
  Sex: Female
  Weight: 96.8 kg

DRUGS (7)
  1. SERTRALINE [Concomitant]
     Active Substance: SERTRALINE HYDROCHLORIDE
     Dosage: 100 MILLIGRAM, QD
     Dates: start: 20191010
  2. ACETYLSALICYLIC ACID [Concomitant]
     Active Substance: ASPIRIN
     Dosage: AFTER OR WITH FOOD.
     Dates: start: 20191010
  3. ADCAL D3 [Concomitant]
     Active Substance: CALCIUM CARBONATE\CHOLECALCIFEROL
     Dosage: 750MG/200UNIT.
     Dates: start: 20191010
  4. PANTOPRAZOLE [Concomitant]
     Active Substance: PANTOPRAZOLE
     Dosage: 20 MILLIGRAM, QD
     Dates: start: 20191010
  5. TRAMADOL. [Suspect]
     Active Substance: TRAMADOL
     Indication: PRODUCT USED FOR UNKNOWN INDICATION
     Dosage: 50 MILLIGRAM
     Route: 048
  6. EPILIM [Concomitant]
     Active Substance: VALPROATE SODIUM
     Dosage: AT NIGHT.
     Dates: start: 20191010
  7. BALMOSA [Concomitant]
     Dosage: 3 DOSAGE FORM, QD
     Dates: start: 20191010

REACTIONS (1)
  - Epilepsy [Recovered/Resolved]
